FAERS Safety Report 8351001-2 (Version None)
Quarter: 2012Q2

REPORT INFORMATION
  Report Type: 
  Country: None (occurrence: None)
  Receive Date: 20120510
  Receipt Date: 20120507
  Transmission Date: 20120825
  Serious: Yes (Other)
  Sender: FDA-Public Use
  Company Number: US-TEVA-337074USA

PATIENT
  Age: 41 Year
  Sex: Female

DRUGS (17)
  1. NIFEDIPINE [Concomitant]
     Dosage: NIFEDIPINE XL 60 MG/DAY
     Route: 065
  2. OXYCODONE HCL AND ACETAMINOPHEN [Concomitant]
     Dosage: OXYCODONE/PARACETAMOL [ACETAMINOPHEN] 10/325 MG TWICE DAILY
     Route: 065
  3. ACYCLOVIR [Concomitant]
     Indication: HERPES ZOSTER
     Route: 065
     Dates: start: 20100922
  4. GABAPENTIN [Concomitant]
     Dosage: 300 MG/DAY
     Route: 065
  5. SODIUM DIOCTYL SULFOSUCCINATE [Concomitant]
     Dosage: 100 MG/DAY
     Route: 065
  6. WARFARIN SODIUM [Suspect]
     Indication: DEEP VEIN THROMBOSIS
     Dosage: 22.5 MG/WEEK
     Route: 065
  7. PREDNISONE TAB [Concomitant]
     Dosage: 10 MG/DAY
     Route: 065
  8. FOLIC ACID [Concomitant]
     Dosage: 1 MG/DAY
     Route: 065
  9. CLINDAMYCIN [Concomitant]
     Indication: LOCALISED INFECTION
     Route: 065
     Dates: start: 20100922, end: 20101008
  10. WARFARIN SODIUM [Interacting]
     Indication: PULMONARY EMBOLISM
     Dosage: 22.5 MG/WEEK
     Route: 065
  11. DAPSONE [Interacting]
     Indication: LOCALISED INFECTION
     Dosage: 100MG
     Route: 065
     Dates: start: 20100922, end: 20101008
  12. HYDROXYCHLOROQUINE [Concomitant]
     Dosage: 200 MG/DAY
     Route: 065
  13. TROSPIUM CHLORIDE [Concomitant]
     Dosage: TROSPIUM XR 60 MG/DAY
     Route: 065
  14. SOLIFENACIN SUCCINATE [Concomitant]
     Dosage: 5 MG/DAY
     Route: 065
  15. FERROUS SULFATE TAB [Concomitant]
     Route: 065
  16. OMEPRAZOLE [Concomitant]
     Route: 065
  17. TRAMADOL HYDROCHLORIDE AND ACETAMINOPHEN [Concomitant]
     Indication: PAIN
     Dosage: TRAMADOL/PARACETAMOL [ACETAMINOPHEN] 37.5/325 MG EVERY 4 TO 6 HOURS AS NEEDED
     Route: 065

REACTIONS (2)
  - INTERNATIONAL NORMALISED RATIO INCREASED [None]
  - DRUG INTERACTION [None]
